FAERS Safety Report 17670747 (Version 1)
Quarter: 2020Q2

REPORT INFORMATION
  Report Type: Spontaneous
  Country: US (occurrence: US)
  Receive Date: 20200415
  Receipt Date: 20200415
  Transmission Date: 20200713
  Serious: No
  Sender: FDA-Public Use
  Company Number: US-SA-2020SA096133

PATIENT
  Age: 65 Year
  Sex: Male

DRUGS (3)
  1. DUPIXENT [Suspect]
     Active Substance: DUPILUMAB
     Indication: MITRAL VALVE INCOMPETENCE
  2. DUPIXENT [Suspect]
     Active Substance: DUPILUMAB
     Indication: HYPOTHYROIDISM
  3. DUPIXENT [Suspect]
     Active Substance: DUPILUMAB
     Indication: CARCINOMA IN SITU OF SKIN
     Dosage: 300 MG, QOW
     Route: 058
     Dates: start: 20200301

REACTIONS (2)
  - Erythema [Unknown]
  - Product use in unapproved indication [Unknown]

NARRATIVE: CASE EVENT DATE: 2020
